FAERS Safety Report 9334590 (Version 1)
Quarter: 2013Q2

REPORT INFORMATION
  Report Type: Spontaneous
  Country: US (occurrence: US)
  Receive Date: 20130606
  Receipt Date: 20130606
  Transmission Date: 20140414
  Serious: Yes (Hospitalization)
  Sender: FDA-Public Use
  Company Number: US-AMGEN-USASP2013021421

PATIENT
  Age: 65 Year
  Sex: Female

DRUGS (8)
  1. PROLIA [Suspect]
     Indication: OSTEOPOROSIS POSTMENOPAUSAL
     Dosage: 60 MG, UNK
     Dates: start: 20120621
  2. PROLIA [Suspect]
     Dosage: 60 MG, UNK
  3. METOPROLOL [Concomitant]
  4. ASPIRIN [Concomitant]
  5. LASIX                              /00032601/ [Concomitant]
  6. ZOCOR [Concomitant]
  7. VITAMIN D                          /00107901/ [Concomitant]
  8. CALCIUM [Concomitant]

REACTIONS (1)
  - Hypocalcaemia [Unknown]
